FAERS Safety Report 8418588-2 (Version None)
Quarter: 2012Q2

REPORT INFORMATION
  Report Type: 
  Country: None (occurrence: None)
  Receive Date: 20120607
  Receipt Date: 20120526
  Transmission Date: 20120825
  Serious: Yes (Hospitalization)
  Sender: FDA-Public Use
  Company Number: AU-BRISTOL-MYERS SQUIBB COMPANY-16640153

PATIENT
  Age: 33 Year
  Sex: Female
  Weight: 89 kg

DRUGS (12)
  1. ORENCIA [Suspect]
     Indication: RHEUMATOID ARTHRITIS
     Route: 042
  2. METHOTREXATE [Concomitant]
     Route: 048
  3. ENDEP [Concomitant]
     Route: 048
  4. LEVOTHYROXINE SODIUM [Concomitant]
     Route: 048
  5. ZANTAC [Concomitant]
     Route: 048
  6. CARDIZEM [Concomitant]
     Route: 048
     Dates: start: 20070101
  7. NORDETTE-28 [Concomitant]
     Route: 048
     Dates: start: 20060101
  8. DITHIAZIDE [Concomitant]
     Route: 048
     Dates: start: 20070101
  9. ACETAMINOPHEN [Concomitant]
     Dosage: PANADOL OSTEO
     Route: 048
  10. MICARDIS [Concomitant]
     Route: 048
  11. CITALOPRAM HYDROBROMIDE [Concomitant]
     Route: 048
  12. LIPITOR [Concomitant]
     Route: 048
     Dates: start: 20090101

REACTIONS (1)
  - FAECALOMA [None]
